FAERS Safety Report 11836398 (Version 1)
Quarter: 2015Q4

REPORT INFORMATION
  Report Type: Report from Study
  Country: US (occurrence: US)
  Receive Date: 20151215
  Receipt Date: 20151215
  Transmission Date: 20160305
  Serious: Yes (Other)
  Sender: FDA-Public Use
  Company Number: US-BAXTER-2015BAX067347

PATIENT
  Age: 67 Year

DRUGS (2)
  1. CYTOXAN [Suspect]
     Active Substance: CYCLOPHOSPHAMIDE
     Indication: CHRONIC LYMPHOCYTIC LEUKAEMIA
     Dosage: DAYS 1-3
     Route: 042
     Dates: start: 20100414, end: 20100607
  2. FLUDARA [Suspect]
     Active Substance: FLUDARABINE PHOSPHATE
     Indication: CHRONIC LYMPHOCYTIC LEUKAEMIA
     Dosage: DAYS 1-3
     Route: 042
     Dates: start: 20100414, end: 20100607

REACTIONS (1)
  - Mania [Unknown]

NARRATIVE: CASE EVENT DATE: 20100527
